FAERS Safety Report 7702408-5 (Version None)
Quarter: 2011Q3

REPORT INFORMATION
  Report Type: 
  Country: None (occurrence: None)
  Receive Date: 20110822
  Receipt Date: 20100818
  Transmission Date: 20111222
  Serious: Yes (Hospitalization)
  Sender: FDA-Public Use
  Company Number: BR-GENENTECH-301728

PATIENT
  Sex: Female

DRUGS (5)
  1. RITUXIMAB [Suspect]
     Dosage: UNK
     Route: 042
     Dates: start: 20100701
  2. PONDERA [Concomitant]
     Indication: PRODUCT USED FOR UNKNOWN INDICATION
  3. METHOTREXATE [Concomitant]
     Indication: PRODUCT USED FOR UNKNOWN INDICATION
  4. RITUXIMAB [Suspect]
     Indication: SYSTEMIC LUPUS ERYTHEMATOSUS
     Dosage: 1000 MG/ML, UNK
     Route: 042
     Dates: start: 20080101, end: 20090901
  5. CLONAZEPAM [Concomitant]
     Indication: PRODUCT USED FOR UNKNOWN INDICATION

REACTIONS (4)
  - SYSTEMIC LUPUS ERYTHEMATOSUS [None]
  - INFLAMMATION [None]
  - PYREXIA [None]
  - THROMBOCYTOPENIA [None]
